FAERS Safety Report 4361247-6 (Version None)
Quarter: 2004Q2

REPORT INFORMATION
  Report Type: 
  Country: None (occurrence: None)
  Receive Date: 20040517
  Receipt Date: 20040510
  Transmission Date: 20050107
  Serious: Yes (Death, Hospitalization)
  Sender: FDA-Public Use
  Company Number: 7958

PATIENT
  Age: 74 Year

DRUGS (2)
  1. LEUCOVORIN CALCIUM [Suspect]
     Dosage: 45 MG WEEKLY IV
     Route: 042
  2. FLUOROURACIL [Suspect]
     Dosage: 425 MG/M2 WEEKLY  IV
     Route: 042

REACTIONS (4)
  - DEEP VEIN THROMBOSIS [None]
  - DIARRHOEA [None]
  - FEBRILE NEUTROPENIA [None]
  - PULMONARY EMBOLISM [None]
